FAERS Safety Report 16338466 (Version 1)
Quarter: 2019Q2

REPORT INFORMATION
  Report Type: Spontaneous
  Country: AU (occurrence: AU)
  Receive Date: 20190521
  Receipt Date: 20190521
  Transmission Date: 20190711
  Serious: Yes (Other)
  Sender: FDA-Public Use
  Company Number: AU-GUERBET-AU-20190022

PATIENT
  Age: 44 Year
  Sex: Female
  Weight: 64 kg

DRUGS (2)
  1. DOTAREM [Suspect]
     Active Substance: GADOTERATE MEGLUMINE
     Dates: start: 20190502, end: 20190502
  2. DOTAREM [Suspect]
     Active Substance: GADOTERATE MEGLUMINE
     Indication: NUCLEAR MAGNETIC RESONANCE IMAGING
     Route: 042
     Dates: start: 20190502, end: 20190502

REACTIONS (2)
  - Dyspnoea [Recovered/Resolved]
  - Dysphagia [Recovered/Resolved]

NARRATIVE: CASE EVENT DATE: 20190502
